FAERS Safety Report 6773029-6 (Version None)
Quarter: 2010Q2

REPORT INFORMATION
  Report Type: 
  Country: None (occurrence: None)
  Receive Date: 20100614
  Receipt Date: 20100601
  Transmission Date: 20101027
  Serious: Yes (Other)
  Sender: FDA-Public Use
  Company Number: 7006796

PATIENT
  Age: 39 Year
  Sex: Female
  Weight: 52 kg

DRUGS (7)
  1. REBIF [Suspect]
     Indication: MULTIPLE SCLEROSIS
     Dosage: 44 MCG, 3 IN 1 WK, SUBCUTANEOUS
     Route: 058
     Dates: start: 20040225
  2. NOVANTRONE [Suspect]
     Indication: MULTIPLE SCLEROSIS
     Dates: start: 20020101
  3. AVONEX [Suspect]
     Indication: MULTIPLE SCLEROSIS RELAPSE
     Dates: start: 20020101, end: 20030101
  4. TOPAMAX [Concomitant]
  5. ESTRACE [Concomitant]
  6. UNSPECIFIED BIRTH CONTROL PILLS (CONTRACEPTIVES NOS) [Concomitant]
  7. VITAMIN D3 (COLECALIFEROL) [Concomitant]

REACTIONS (4)
  - BREAST CANCER IN SITU [None]
  - DYSPEPSIA [None]
  - OSTEOPENIA [None]
  - SKIN DISORDER [None]
